FAERS Safety Report 9821282 (Version 4)
Quarter: 2014Q4

REPORT INFORMATION
  Report Type: Spontaneous
  Country: US (occurrence: None)
  Receive Date: 20131028
  Receipt Date: 20141015
  Transmission Date: 20150529
  Serious: Yes (Other)
  Sender: FDA-Public Use
  Company Number: 2013US001198

PATIENT
  Age: 79 Year
  Sex: Male
  Weight: 113 kg

DRUGS (20)
  1. NEURONTIN [Concomitant]
     Active Substance: GABAPENTIN
  2. ADVAIR DISKUS [Concomitant]
     Active Substance: FLUTICASONE PROPIONATE\SALMETEROL XINAFOATE
  3. ICLUSIG [Suspect]
     Active Substance: PONATINIB
     Indication: CHRONIC MYELOID LEUKAEMIA
     Dosage: 45 MG, QD, ORAL
     Route: 048
     Dates: start: 20130207, end: 20130220
  4. FUROSEMIDE (FUROSEMIDE) [Concomitant]
     Active Substance: FUROSEMIDE
  5. ALLOPURINOL (ALLOPURINOL) [Concomitant]
  6. LIPITOR [Concomitant]
     Active Substance: ATORVASTATIN CALCIUM
  7. NTG [Concomitant]
     Active Substance: NITROGLYCERIN
  8. LEVOTHYROXINE (LEVOTHYROXINE) [Concomitant]
     Active Substance: LEVOTHYROXINE
  9. FLOMAX [Concomitant]
     Active Substance: TAMSULOSIN HYDROCHLORIDE
  10. WARFARIN (WARFARIN) [Concomitant]
     Active Substance: WARFARIN
  11. DOXAZOSIN [Concomitant]
     Active Substance: DOXAZOSIN\DOXAZOSIN MESYLATE
  12. STOOL SOFTENER (DOCUSATE SODIUM) [Concomitant]
     Active Substance: DOCUSATE SODIUM
  13. VENLAFAXINE [Concomitant]
     Active Substance: VENLAFAXINE HYDROCHLORIDE
  14. METOPROLOL (METOPROLOL) [Concomitant]
     Active Substance: METOPROLOL
  15. ISOSORBIDE (ISOSORBIDE) [Concomitant]
     Active Substance: ISOSORBIDE
  16. DIGOXIN (DIGOXIN) [Concomitant]
     Active Substance: DIGOXIN
  17. COMBIVENT (IPRATROPIUM BROMIDE, SALBUTAMOL SULFATE) [Concomitant]
  18. PREDNISONE (PREDNISONE) [Concomitant]
     Active Substance: PREDNISONE
  19. ASA (ASA) [Concomitant]
  20. ALBUTEROL SULFATE (ALBUTEROL SULFATE) [Concomitant]

REACTIONS (4)
  - Dry skin [None]
  - Weight increased [None]
  - Anaemia [None]
  - Rash [None]

NARRATIVE: CASE EVENT DATE: 20130220
